FAERS Safety Report 9543836 (Version 2)
Quarter: 2013Q3

REPORT INFORMATION
  Report Type: Spontaneous
  Country: JP (occurrence: JP)
  Receive Date: 20130923
  Receipt Date: 20130923
  Transmission Date: 20140515
  Serious: Yes (Other)
  Sender: FDA-Public Use
  Company Number: JP-009507513-1309JPN001327

PATIENT
  Age: 10 Year
  Sex: Male
  Weight: 35 kg

DRUGS (5)
  1. CLARITIN REDITABS [Suspect]
     Indication: RHINITIS ALLERGIC
     Dosage: 10 MG, ONCE A DAY
     Route: 048
     Dates: start: 20130821, end: 20130831
  2. KIPRES [Suspect]
     Indication: ASTHMA
     Dosage: 5 MG, 1/1 DAY
     Route: 048
     Dates: start: 20130821, end: 20130827
  3. HOKUNALIN [Concomitant]
     Indication: ASTHMA
     Dosage: 2 MG, 1/1 DAY
     Route: 062
     Dates: start: 20130821, end: 20130828
  4. ASTOMIN [Concomitant]
     Indication: ASTHMA
     Dosage: 10 MG, THREE TIMES A DAY
     Route: 048
     Dates: start: 20130821, end: 20130831
  5. MUCODYNE [Concomitant]
     Indication: ASTHMA
     Dosage: 250 MG, THREE TIMES A DAY
     Route: 048
     Dates: start: 20130821, end: 20130831

REACTIONS (1)
  - Enuresis [Recovered/Resolved]
